FAERS Safety Report 5087878-6 (Version None)
Quarter: 2006Q3

REPORT INFORMATION
  Report Type: 
  Country: None (occurrence: None)
  Receive Date: 20060821
  Receipt Date: 20060821
  Transmission Date: 20061208
  Serious: Yes (Other)
  Sender: FDA-Public Use
  Company Number: None

PATIENT
  Age: 32 Year
  Sex: Female
  Weight: 45 kg

DRUGS (4)
  1. OMNISCAN [Suspect]
     Indication: COMPLICATIONS OF TRANSPLANTED KIDNEY
     Dosage: 40 CC    ONE TIME INJECTION     IV
     Route: 042
     Dates: start: 20050506, end: 20050506
  2. COUMADIN [Concomitant]
  3. PREDNISONE TAB [Concomitant]
  4. FOLIC ACID [Concomitant]

REACTIONS (2)
  - ARTHRALGIA [None]
  - NEPHROGENIC FIBROSING DERMOPATHY [None]
